FAERS Safety Report 4889424-6 (Version None)
Quarter: 2006Q1

REPORT INFORMATION
  Report Type: 
  Country: None (occurrence: None)
  Receive Date: 20060124
  Receipt Date: 20060113
  Transmission Date: 20060701
  Serious: Yes (Other)
  Sender: FDA-Public Use
  Company Number: PHEH2006US01011

PATIENT
  Sex: Female

DRUGS (1)
  1. FAMVIR [Suspect]
     Indication: HERPES ZOSTER
     Route: 048

REACTIONS (3)
  - BIPOLAR DISORDER [None]
  - DEPRESSION [None]
  - DISEASE RECURRENCE [None]
